FAERS Safety Report 5226729-3 (Version None)
Quarter: 2007Q1

REPORT INFORMATION
  Report Type: 
  Country: None (occurrence: None)
  Receive Date: 20070129
  Receipt Date: 20070115
  Transmission Date: 20070707
  Serious: Yes (Other)
  Sender: FDA-Public Use
  Company Number: 02100-USA-07-0004

PATIENT
  Age: 68 Year
  Sex: Male

DRUGS (4)
  1. CILOSTAZOL [Suspect]
     Indication: ANGIOPATHY
     Dosage: DF
     Dates: start: 20061101, end: 20061215
  2. VARENICLINE [Concomitant]
  3. VALSARTAN [Concomitant]
  4. EZETIMIBE/SIMVASTATIN [Concomitant]

REACTIONS (6)
  - CONSTIPATION [None]
  - DIARRHOEA [None]
  - DRUG INEFFECTIVE [None]
  - DYSURIA [None]
  - POLLAKIURIA [None]
  - STOMACH DISCOMFORT [None]
